FAERS Safety Report 6896028-2 (Version None)
Quarter: 2010Q3

REPORT INFORMATION
  Report Type: 
  Country: None (occurrence: None)
  Receive Date: 20100802
  Receipt Date: 20100721
  Transmission Date: 20110219
  Serious: Yes (Hospitalization)
  Sender: FDA-Public Use
  Company Number: A0785936A

PATIENT
  Age: 58 Year
  Sex: Female
  Weight: 84.1 kg

DRUGS (8)
  1. AVANDIA [Suspect]
     Route: 048
     Dates: start: 20050801, end: 20070601
  2. AMARYL [Concomitant]
     Dates: start: 20040101, end: 20071101
  3. ACIPHEX [Concomitant]
  4. HYDROCHLOROTHIAZIDE [Concomitant]
  5. ZOLOFT [Concomitant]
  6. ACTOS [Concomitant]
  7. METFORMIN HCL [Concomitant]
  8. MAVIK [Concomitant]

REACTIONS (5)
  - ANGINA UNSTABLE [None]
  - DIZZINESS [None]
  - HEADACHE [None]
  - TRANSIENT ISCHAEMIC ATTACK [None]
  - VESTIBULAR NEURONITIS [None]
